FAERS Safety Report 9601261 (Version 1)
Quarter: 2013Q4

REPORT INFORMATION
  Report Type: Spontaneous
  Country: US (occurrence: US)
  Receive Date: 20131006
  Receipt Date: 20131006
  Transmission Date: 20140711
  Serious: No
  Sender: FDA-Public Use
  Company Number: US-009507513-1310USA000280

PATIENT
  Age: 61 Year
  Sex: Male

DRUGS (4)
  1. TEMOZOLOMIDE [Suspect]
     Indication: GLIOBLASTOMA MULTIFORME
     Dosage: 75 MG/M2 DAILY
     Route: 048
  2. TEMOZOLOMIDE [Suspect]
     Dosage: 150 MG/M2, IN DIVIDED DOSES TWICE DAILY FOR 5 CONSECUTIVE DAYS OF EACH 28 DAY CYCLE
     Route: 048
  3. TEMOZOLOMIDE [Suspect]
     Dosage: 75 MG/M2, IN DIVIDED TWICE DAILY DOSES
     Route: 048
  4. TEMOZOLOMIDE [Suspect]
     Dosage: 150 MG/M2 DAILY
     Route: 048

REACTIONS (3)
  - Thrombocytopenia [Recovered/Resolved]
  - Nausea [Recovered/Resolved]
  - Inappropriate schedule of drug administration [Unknown]
